FAERS Safety Report 11795725 (Version 1)
Quarter: 2015Q4

REPORT INFORMATION
  Report Type: Spontaneous
  Country: US (occurrence: US)
  Receive Date: 20151202
  Receipt Date: 20151202
  Transmission Date: 20160305
  Serious: Yes (Hospitalization)
  Sender: FDA-Public Use
  Company Number: GXBR2015US001171

PATIENT
  Sex: Female

DRUGS (10)
  1. OMEGA 3 [Concomitant]
     Active Substance: OMEGA-3 FATTY ACIDS
     Dosage: UNK DF, UNK
  2. TOCOPHEROL [Concomitant]
     Active Substance: TOCOPHEROL
     Dosage: UNK DF, UNK
  3. VITAMIN D [Concomitant]
     Active Substance: CHOLECALCIFEROL
     Dosage: UNK DF, UNK
  4. DICLOFENAC SODIUM D/R [Suspect]
     Active Substance: DICLOFENAC SODIUM
     Indication: ANALGESIC THERAPY
     Dosage: 75 MG, UNK
     Route: 048
  5. VITAMIN C [Concomitant]
     Active Substance: ASCORBIC ACID
     Dosage: UNK DF, UNK
  6. ALPHA LIPOIC ACID [Concomitant]
     Active Substance: .ALPHA.-LIPOIC ACID
     Dosage: UNK DF, UNK
  7. COQ10 [Concomitant]
     Active Substance: UBIDECARENONE
     Dosage: UNK DF, UNK
  8. BABY ASPIRIN [Concomitant]
     Active Substance: ASPIRIN
     Dosage: UNK DF, UNK
  9. B12-VITAMIIN [Concomitant]
     Dosage: UNK DF, UNK
  10. MAGNESIUM [Concomitant]
     Active Substance: MAGNESIUM
     Dosage: UNK DF, UNK

REACTIONS (1)
  - Abdominal discomfort [Unknown]
